FAERS Safety Report 24697035 (Version 1)
Quarter: 2024Q4

REPORT INFORMATION
  Report Type: Spontaneous
  Country: US (occurrence: US)
  Receive Date: 20241204
  Receipt Date: 20241204
  Transmission Date: 20250114
  Serious: Yes (Other)
  Sender: PFIZER
  Company Number: US-PFIZER INC-202400312530

PATIENT
  Age: 83 Year
  Sex: Female

DRUGS (1)
  1. DILTIAZEM HYDROCHLORIDE [Suspect]
     Active Substance: DILTIAZEM HYDROCHLORIDE
     Indication: Atrial fibrillation
     Dosage: STARTED  30 MGS QD ENDING WITH 240 MGS QDS
     Dates: start: 202306, end: 202409

REACTIONS (3)
  - Blood thyroid stimulating hormone increased [Unknown]
  - Drug ineffective [Recovering/Resolving]
  - Hypoglycaemia [Recovering/Resolving]
